FAERS Safety Report 18575042 (Version 1)
Quarter: 2020Q4

REPORT INFORMATION
  Report Type: Spontaneous
  Country: US (occurrence: US)
  Receive Date: 20201203
  Receipt Date: 20201203
  Transmission Date: 20210114
  Serious: Yes (Other)
  Sender: FDA-Public Use
  Company Number: US-PFIZER INC-2014067289

PATIENT
  Age: 64 Year
  Sex: Female

DRUGS (9)
  1. LAMOTRIGINE. [Concomitant]
     Active Substance: LAMOTRIGINE
     Dosage: UNK
  2. LYRICA [Suspect]
     Active Substance: PREGABALIN
     Indication: PARTIAL SEIZURES
     Dosage: 25 MG, 1X/DAY (NIGHTLY AT BEDTIME)
     Route: 048
  3. LYRICA [Suspect]
     Active Substance: PREGABALIN
     Indication: EPILEPSY
     Dosage: 50 MG
  4. LYRICA [Suspect]
     Active Substance: PREGABALIN
     Indication: SIMPLE PARTIAL SEIZURES
     Dosage: 75 MG, 2X/DAY
     Route: 048
  5. LAMICTAL [Concomitant]
     Active Substance: LAMOTRIGINE
     Dosage: UNK
  6. CALCIUM [Concomitant]
     Active Substance: CALCIUM
     Dosage: UNK
  7. CITALOPRAM [Concomitant]
     Active Substance: CITALOPRAM HYDROBROMIDE
     Dosage: UNK
  8. LYRICA [Suspect]
     Active Substance: PREGABALIN
     Indication: MIGRAINE WITHOUT AURA
  9. SIMVASTATIN. [Concomitant]
     Active Substance: SIMVASTATIN
     Dosage: UNK

REACTIONS (2)
  - Dementia [Unknown]
  - Expired product administered [Unknown]
